FAERS Safety Report 18418945 (Version 1)
Quarter: 2020Q4

REPORT INFORMATION
  Report Type: Spontaneous
  Country: US (occurrence: US)
  Receive Date: 20201021
  Receipt Date: 20201021
  Transmission Date: 20210114
  Serious: Yes (Other)
  Sender: FDA-Public Use
  Company Number: None

PATIENT
  Age: 60 Year
  Sex: Female
  Weight: 65.77 kg

DRUGS (1)
  1. NP THYROID [Suspect]
     Active Substance: LEVOTHYROXINE\LIOTHYRONINE
     Indication: HYPOTHYROIDISM
     Dosage: ?          QUANTITY:3 TAB 3 DAYS A WEE;?
     Route: 048
     Dates: start: 20200316, end: 20200528

REACTIONS (6)
  - Recalled product administered [None]
  - Muscular weakness [None]
  - Weight decreased [None]
  - Alopecia [None]
  - Vision blurred [None]
  - Affective disorder [None]

NARRATIVE: CASE EVENT DATE: 20200528
